FAERS Safety Report 14421262 (Version 1)
Quarter: 2018Q1

REPORT INFORMATION
  Report Type: Spontaneous
  Country: NL (occurrence: NL)
  Receive Date: 20180122
  Receipt Date: 20180122
  Transmission Date: 20180509
  Serious: Yes (Congenital Anomaly)
  Sender: FDA-Public Use
  Company Number: NL-BAUSCH-BL-2018-001209

PATIENT

DRUGS (3)
  1. PROGRAFT [Suspect]
     Active Substance: TACROLIMUS
     Indication: RENAL TRANSPLANT
     Dosage: EVERY 12 HOURS
     Route: 064
  2. AZATHIOPRINE. [Suspect]
     Active Substance: AZATHIOPRINE
     Indication: RENAL TRANSPLANT
     Route: 064
  3. PREDNISOLON [Suspect]
     Active Substance: PREDNISOLONE
     Indication: RENAL TRANSPLANT
     Dosage: 1 PER DAY 5 MG
     Route: 064

REACTIONS (1)
  - Talipes [Not Recovered/Not Resolved]
